FAERS Safety Report 8987929 (Version 1)
Quarter: 2012Q4

REPORT INFORMATION
  Report Type: 
  Country: US (occurrence: US)
  Receive Date: 20121227
  Receipt Date: 20121227
  Transmission Date: 20130627
  Serious: Yes (Hospitalization, Other)
  Sender: FDA-Public Use
  Company Number: US-PFIZER INC-2012326771

PATIENT
  Age: 53 Year
  Sex: Female
  Weight: 109 kg

DRUGS (9)
  1. LYRICA [Suspect]
     Indication: SHINGLES
     Dosage: 50 mg, 2x/day
  2. LYRICA [Suspect]
     Indication: PERIPHERAL NERVE INJURY
  3. SINGULAIR [Concomitant]
     Indication: ASTHMA
     Dosage: UNK
  4. ADVAIR [Concomitant]
     Indication: ASTHMA
     Dosage: UNK
  5. ALBUTEROL [Concomitant]
     Indication: ASTHMA
     Dosage: UNK
  6. ATROVENT [Concomitant]
     Indication: ASTHMA
     Dosage: UNK
  7. MELOXICAM [Concomitant]
     Indication: OSTEOARTHRITIS
     Dosage: UNK
  8. TIZANIDINE [Concomitant]
     Indication: MUSCLE SPASM
     Dosage: UNK
  9. TIZANIDINE [Concomitant]
     Indication: PAIN IN LEG

REACTIONS (4)
  - Cellulitis [Recovered/Resolved]
  - Arthropathy [Unknown]
  - Osteoarthritis [Unknown]
  - Body height decreased [Unknown]
